FAERS Safety Report 5372872-8 (Version None)
Quarter: 2007Q2

REPORT INFORMATION
  Report Type: 
  Country: None (occurrence: None)
  Receive Date: 20070621
  Receipt Date: 20070308
  Transmission Date: 20071010
  Serious: No
  Sender: FDA-Public Use
  Company Number: US-CVT-070072

PATIENT
  Age: 82 Year
  Sex: Male

DRUGS (8)
  1. RANEXA [Suspect]
     Indication: ANGINA PECTORIS
     Dosage: 500 MG, BID, ORAL
     Route: 048
     Dates: start: 20070101
  2. PLAVIX [Concomitant]
  3. TOPROL-XL [Concomitant]
  4. PROTONIX /01263201/(PANTOPRAZOLE) [Concomitant]
  5. ASPIRIN [Concomitant]
  6. ASCORBIC ACID [Concomitant]
  7. BETACAROTENE (BETACAROENE) [Concomitant]
  8. VITAMIN 6 (PYRIDOXINE HYDROCHORIDE) [Concomitant]

REACTIONS (6)
  - ABNORMAL FAECES [None]
  - CONSTIPATION [None]
  - DYSURIA [None]
  - RENAL IMPAIRMENT [None]
  - SKIN ODOUR ABNORMAL [None]
  - URINE ODOUR ABNORMAL [None]
